FAERS Safety Report 24696296 (Version 1)
Quarter: 2024Q4

REPORT INFORMATION
  Report Type: Spontaneous
  Country: CA (occurrence: CA)
  Receive Date: 20241204
  Receipt Date: 20241204
  Transmission Date: 20250115
  Serious: Yes (Life-Threatening, Hospitalization)
  Sender: TEVA
  Company Number: CA-TEVA-VS-3271490

PATIENT
  Age: 2 Month
  Sex: Female
  Weight: 5 kg

DRUGS (8)
  1. VINCRISTINE [Suspect]
     Active Substance: VINCRISTINE
     Indication: Acute lymphocytic leukaemia
     Dosage: VINCRISTINE SULFATE INJECTION USP, DOSE FORM: NOT SPECIFIED
     Route: 042
  2. BLINCYTO [Concomitant]
     Active Substance: BLINATUMOMAB
     Indication: Product used for unknown indication
     Dosage: BLINCYTO LYOPHILIZED POWDER. FOR I.V. INFUSION, DOSE FORM: POWDER FOR SOLUTION INTRAVENOUS
  3. DEXAMETHASONE [Concomitant]
     Active Substance: DEXAMETHASONE
     Indication: Product used for unknown indication
     Dosage: DOSE FORM: LIQUID INTRA-ARTICULAR
  4. CYTARABINE [Concomitant]
     Active Substance: CYTARABINE
     Indication: Product used for unknown indication
     Dosage: CYTARABINE INJECTION, DOSE FORM: NOT SPECIFIED
  5. DAUNORUBICIN [Concomitant]
     Active Substance: DAUNORUBICIN
     Indication: Product used for unknown indication
     Dosage: DAUNOMYCIN /00128201/
  6. PEGASPARGASE [Concomitant]
     Active Substance: PEGASPARGASE
     Indication: Product used for unknown indication
  7. PREDNISONE [Concomitant]
     Active Substance: PREDNISONE
     Indication: Product used for unknown indication
     Dosage: DOSE FORM: NOT SPECIFIED
  8. METHOTREXATE [Concomitant]
     Active Substance: METHOTREXATE
     Indication: Product used for unknown indication

REACTIONS (6)
  - Laryngeal erythema [Recovered/Resolved]
  - Stridor [Recovered/Resolved]
  - Endotracheal intubation [Recovered/Resolved]
  - Toxicity to various agents [Recovered/Resolved]
  - Laryngeal oedema [Recovered/Resolved]
  - Vocal cord paralysis [Recovered/Resolved]
